FAERS Safety Report 15036473 (Version 2)
Quarter: 2018Q2

REPORT INFORMATION
  Report Type: Report from Study
  Country: AU (occurrence: AU)
  Receive Date: 20180620
  Receipt Date: 20180626
  Transmission Date: 20180711
  Serious: Yes (Other)
  Sender: FDA-Public Use
  Company Number: AU-TEVA-2018-AU-912579

PATIENT
  Sex: Male

DRUGS (1)
  1. COPAXONE [Suspect]
     Active Substance: GLATIRAMER ACETATE
     Indication: MULTIPLE SCLEROSIS
     Dosage: START DATE: 8 YEARS AGO
     Route: 058

REACTIONS (8)
  - Injection site reaction [Recovered/Resolved]
  - Flushing [Unknown]
  - Chills [Unknown]
  - Injection site atrophy [Unknown]
  - Temperature regulation disorder [Unknown]
  - Injection site necrosis [Not Recovered/Not Resolved]
  - Palpitations [Unknown]
  - Injection site haematoma [Unknown]
